FAERS Safety Report 10652552 (Version 3)
Quarter: 2015Q1

REPORT INFORMATION
  Report Type: Spontaneous
  Country: US (occurrence: US)
  Receive Date: 20141215
  Receipt Date: 20150217
  Transmission Date: 20150720
  Serious: Yes (Other)
  Sender: FDA-Public Use
  Company Number: US-BAYER-2014-183002

PATIENT
  Age: 23 Year
  Sex: Female
  Weight: 56.24 kg

DRUGS (1)
  1. MIRENA [Suspect]
     Active Substance: LEVONORGESTREL
     Dosage: 20 MCG/24HR, CONT
     Route: 015
     Dates: start: 20111207, end: 20121211

REACTIONS (4)
  - Uterine perforation [None]
  - Device breakage [None]
  - Injury [None]
  - Complication of device removal [None]

NARRATIVE: CASE EVENT DATE: 201212
